FAERS Safety Report 5186952-3 (Version None)
Quarter: 2006Q4

REPORT INFORMATION
  Report Type: 
  Country: None (occurrence: None)
  Receive Date: 20061220
  Receipt Date: 20061208
  Transmission Date: 20070319
  Serious: Yes (Death)
  Sender: FDA-Public Use
  Company Number: 2006UW27352

PATIENT
  Age: 61 Year
  Sex: Male
  Weight: 102.5 kg

DRUGS (10)
  1. LISINOPRIL [Suspect]
     Indication: HYPERTENSION
     Route: 048
     Dates: end: 20061201
  2. PLACEBO [Suspect]
     Indication: CHRONIC OBSTRUCTIVE PULMONARY DISEASE
     Route: 055
     Dates: start: 20060815
  3. ALBUTEROL [Suspect]
     Indication: CHRONIC OBSTRUCTIVE PULMONARY DISEASE
     Route: 055
     Dates: start: 20060815, end: 20061201
  4. ATROVENT [Suspect]
     Indication: CHRONIC OBSTRUCTIVE PULMONARY DISEASE
     Route: 055
     Dates: start: 20060925, end: 20061201
  5. LOVASTATIN [Suspect]
     Indication: BLOOD CHOLESTEROL INCREASED
     Route: 048
     Dates: start: 20060201, end: 20061201
  6. XALATAN [Suspect]
     Indication: GLAUCOMA
     Dates: end: 20061201
  7. CELEXA [Suspect]
     Indication: DEPRESSION
     Route: 048
     Dates: end: 20061201
  8. ASPIRIN [Suspect]
     Indication: PROPHYLAXIS
     Route: 048
     Dates: end: 20061201
  9. VITAMIN E [Suspect]
     Indication: VITAMIN SUPPLEMENTATION
     Route: 048
     Dates: end: 20061201
  10. COUMADIN [Suspect]
     Indication: ATRIAL FIBRILLATION
     Route: 048
     Dates: end: 20061201

REACTIONS (1)
  - CARDIAC ARREST [None]
